FAERS Safety Report 6522074-4 (Version None)
Quarter: 2009Q4

REPORT INFORMATION
  Report Type: 
  Country: None (occurrence: None)
  Receive Date: 20091229
  Receipt Date: 20091229
  Transmission Date: 20100525
  Serious: Yes (Other)
  Sender: FDA-Public Use
  Company Number: None

PATIENT
  Sex: Female
  Weight: 71.6683 kg

DRUGS (1)
  1. HYDROXYCHLORIQUINE [Suspect]
     Indication: SYSTEMIC LUPUS ERYTHEMATOSUS
     Dosage: 200 MG ONCE BID PO PRIOR TO 2003
     Route: 048

REACTIONS (2)
  - CONDITION AGGRAVATED [None]
  - GASTRITIS EROSIVE [None]
